FAERS Safety Report 8519954-7 (Version None)
Quarter: 2012Q3

REPORT INFORMATION
  Report Type: 
  Country: None (occurrence: None)
  Receive Date: 20120719
  Receipt Date: 20120712
  Transmission Date: 20120928
  Serious: Yes (Hospitalization)
  Sender: FDA-Public Use
  Company Number: US-SHIRE-ALL1-2012-03414

PATIENT
  Sex: Female
  Weight: 49.887 kg

DRUGS (3)
  1. RITALIN [Concomitant]
     Indication: ATTENTION DEFICIT/HYPERACTIVITY DISORDER
     Dosage: UNK, UNKNOWN
     Route: 048
     Dates: start: 20120511, end: 20120601
  2. VYVANSE [Suspect]
     Indication: ATTENTION DEFICIT/HYPERACTIVITY DISORDER
     Dosage: 70 MG, 1X/DAY:QD
     Route: 048
     Dates: start: 20110101, end: 20120609
  3. SUBOXONE [Concomitant]
     Indication: DRUG DEPENDENCE
     Dosage: UNK, UNKNOWN
     Route: 048
     Dates: start: 20070101, end: 20120601

REACTIONS (6)
  - OBSESSIVE-COMPULSIVE DISORDER [None]
  - INAPPROPRIATE AFFECT [None]
  - DECREASED EYE CONTACT [None]
  - POLYDIPSIA [None]
  - PSYCHOTIC DISORDER [None]
  - IMPULSIVE BEHAVIOUR [None]
